FAERS Safety Report 4383020-5 (Version None)
Quarter: 2004Q2

REPORT INFORMATION
  Report Type: 
  Country: None (occurrence: None)
  Receive Date: 20040526
  Receipt Date: 20040325
  Transmission Date: 20050107
  Serious: Yes (Hospitalization)
  Sender: FDA-Public Use
  Company Number: USA040363246

PATIENT
  Age: 8 Year
  Sex: Male

DRUGS (7)
  1. ZYPREXA [Suspect]
     Indication: AFFECTIVE DISORDER
     Dosage: 5 MG DAY
  2. ZYPREXA [Suspect]
     Indication: ATTENTION DEFICIT/HYPERACTIVITY DISORDER
     Dosage: 5 MG DAY
  3. STRATTERA [Suspect]
     Indication: ATTENTION DEFICIT/HYPERACTIVITY DISORDER
     Dosage: 40 MG DAY
  4. RISPERDAL [Concomitant]
  5. DEPAKOTE [Concomitant]
  6. LORAZEPAM [Concomitant]
  7. KLONOPIN [Concomitant]

REACTIONS (6)
  - AGITATION [None]
  - HOARSENESS [None]
  - HYPERKINESIA [None]
  - SYDENHAM'S CHOREA [None]
  - TARDIVE DYSKINESIA [None]
  - VOCAL CORD THICKENING [None]
